FAERS Safety Report 16737578 (Version 5)
Quarter: 2019Q4

REPORT INFORMATION
  Report Type: Spontaneous
  Country: JP (occurrence: JP)
  Receive Date: 20190823
  Receipt Date: 20191227
  Transmission Date: 20200122
  Serious: Yes (Life-Threatening, Hospitalization, Disabling, Other)
  Sender: FDA-Public Use
  Company Number: JP-PFIZER INC-2019339669

PATIENT
  Age: 78 Year
  Sex: Female
  Weight: 50 kg

DRUGS (7)
  1. RHEUMATREX [Suspect]
     Active Substance: METHOTREXATE SODIUM
     Indication: RHEUMATOID ARTHRITIS
     Dosage: 4 MG, WEEKLY
     Route: 048
     Dates: start: 201610, end: 20190704
  2. ORENCIA [Suspect]
     Active Substance: ABATACEPT
     Indication: RHEUMATOID ARTHRITIS
     Dosage: 125MG EVERY OTHER WEEK
     Route: 058
     Dates: start: 201808, end: 20190625
  3. TARACET [Concomitant]
     Dosage: 3 DF, 3X/DAY
  4. EDIROL [Concomitant]
     Active Substance: ELDECALCITOL
  5. REBAMIPIDE [Concomitant]
     Active Substance: REBAMIPIDE
     Dosage: 3 DF, 3X/DAY
  6. PRALIA [Concomitant]
     Active Substance: DENOSUMAB
     Dosage: 60 MG, UNK (FIRST DOSE)
     Route: 058
     Dates: start: 201901, end: 2019
  7. PRALIA [Concomitant]
     Active Substance: DENOSUMAB
     Dosage: UNK (SECOND DOSE)
     Route: 058
     Dates: start: 20190701

REACTIONS (3)
  - Neoplasm recurrence [Unknown]
  - Spinal compression fracture [Recovering/Resolving]
  - Nerve compression [Unknown]

NARRATIVE: CASE EVENT DATE: 201901
